FAERS Safety Report 4699650-7 (Version None)
Quarter: 2005Q2

REPORT INFORMATION
  Report Type: 
  Country: None (occurrence: None)
  Receive Date: 20050623
  Receipt Date: 20050614
  Transmission Date: 20051028
  Serious: Yes (Hospitalization, Other)
  Sender: FDA-Public Use
  Company Number: 2005028725

PATIENT
  Age: 70 Year
  Sex: Female
  Weight: 62 kg

DRUGS (5)
  1. CABERGOLINE [Suspect]
     Indication: PARKINSON'S DISEASE
     Dosage: 2 MG (DAILY), ORAL
     Route: 048
     Dates: start: 20040211, end: 20050201
  2. MANIDON (VERAPAMIL HYDROCHLORIDE) [Concomitant]
  3. ADIRO (ACETYLSALICYLIC ACID) [Concomitant]
  4. SINEMET [Concomitant]
  5. SEROXAT  NOVO NORDISK  (PAROXETINE HYDROCHLORIDE) [Concomitant]

REACTIONS (4)
  - AORTIC ATHEROSCLEROSIS [None]
  - AORTIC VALVE DISEASE MIXED [None]
  - AORTIC VALVE INCOMPETENCE [None]
  - CARDIAC FAILURE [None]
